FAERS Safety Report 14410088 (Version 8)
Quarter: 2019Q3

REPORT INFORMATION
  Report Type: Spontaneous
  Country: US (occurrence: US)
  Receive Date: 20180119
  Receipt Date: 20190805
  Transmission Date: 20191004
  Serious: No
  Sender: FDA-Public Use
  Company Number: US-PFIZER INC-2018024376

PATIENT
  Age: 13 Year
  Sex: Female
  Weight: 65.77 kg

DRUGS (3)
  1. ELELYSO [Suspect]
     Active Substance: TALIGLUCERASE ALFA
     Indication: GAUCHER^S DISEASE
     Dosage: 3800 IU, EVERY 2 WEEKS
     Route: 042
     Dates: start: 20170405
  2. ELELYSO [Suspect]
     Active Substance: TALIGLUCERASE ALFA
     Dosage: 60 IU/KG, EVERY 2 WEEKS
     Route: 042
  3. ELELYSO [Suspect]
     Active Substance: TALIGLUCERASE ALFA
     Dosage: UNK
     Dates: start: 20180601, end: 20190515

REACTIONS (8)
  - Pyrexia [Recovered/Resolved]
  - Viral infection [Recovered/Resolved]
  - Fatigue [Unknown]
  - Poor venous access [Unknown]
  - Discomfort [Unknown]
  - Influenza virus test positive [Recovered/Resolved]
  - Oropharyngeal pain [Recovered/Resolved]
  - Product dose omission [Unknown]

NARRATIVE: CASE EVENT DATE: 20180208
